FAERS Safety Report 4936423-1 (Version None)
Quarter: 2006Q1

REPORT INFORMATION
  Report Type: 
  Country: None (occurrence: None)
  Receive Date: 20060127
  Receipt Date: 20051215
  Transmission Date: 20060701
  Serious: Yes (Other)
  Sender: FDA-Public Use
  Company Number: 2005164622

PATIENT
  Sex: Male

DRUGS (18)
  1. LYRICA [Suspect]
     Indication: DIABETIC NEUROPATHY
     Dosage: 150 MG (50 MG,3 IN 1 D),ORAL
     Route: 048
     Dates: start: 20051128, end: 20051201
  2. GLIPIZIDE [Concomitant]
  3. NOVOLOG [Concomitant]
  4. FUROSEMIDE [Concomitant]
  5. POTASSIUM CHLORIDE [Concomitant]
  6. TOPROL-XL [Concomitant]
  7. AVALIDE [Concomitant]
  8. VYTORIN [Concomitant]
  9. ASPIRIN [Concomitant]
  10. OXYGEN (OXYGEN) [Concomitant]
  11. ADVAIR DISKUS 100/50 [Concomitant]
  12. COMBIVENT [Concomitant]
  13. CYCLOBENZAPRINE HCL [Concomitant]
  14. AMBIEN [Concomitant]
  15. ALL OTHER THERAPEUTIC PRODUCTS (ALL OTHER THERAPEUTIC PRODUCTS) [Concomitant]
  16. METAMUCIL ^PROCTOR + GAMBLE^ (GLUCOSE MONOHYDRATE, ISPAGHULA HUSK) [Concomitant]
  17. DIPHENHYDRAMINE HCL [Concomitant]
  18. HYDROCODONE BITARTRATE + ACETAMINOPHEN [Concomitant]

REACTIONS (10)
  - COGNITIVE DISORDER [None]
  - DYSKINESIA [None]
  - FEELING ABNORMAL [None]
  - HALLUCINATIONS, MIXED [None]
  - HANGOVER [None]
  - HYPERSOMNIA [None]
  - IMPULSIVE BEHAVIOUR [None]
  - PAIN [None]
  - SWELLING [None]
  - TREMOR [None]
